FAERS Safety Report 9347987 (Version 3)
Quarter: 2013Q3

REPORT INFORMATION
  Report Type: Spontaneous
  Country: US (occurrence: US)
  Receive Date: 20130614
  Receipt Date: 20130711
  Transmission Date: 20140515
  Serious: Yes (Hospitalization, Other)
  Sender: FDA-Public Use
  Company Number: US-BAYER-2013-073287

PATIENT
  Age: 27 Year
  Sex: Female
  Weight: 58.05 kg

DRUGS (1)
  1. MIRENA [Suspect]
     Indication: CONTRACEPTION
     Dosage: 20 MCG/24HR, CONT
     Route: 015
     Dates: start: 20110628, end: 20130611

REACTIONS (8)
  - Ectopic pregnancy with contraceptive device [Recovered/Resolved]
  - Drug ineffective [None]
  - Genital haemorrhage [None]
  - Pain [None]
  - Pelvic haemorrhage [None]
  - Device dislocation [Recovered/Resolved]
  - Abdominal pain [Recovered/Resolved]
  - Hypomenorrhoea [None]
